FAERS Safety Report 9928751 (Version 1)
Quarter: 2014Q1

REPORT INFORMATION
  Report Type: Spontaneous
  Country: US (occurrence: US)
  Receive Date: 20140227
  Receipt Date: 20140227
  Transmission Date: 20141002
  Serious: Yes (Death, Hospitalization)
  Sender: FDA-Public Use
  Company Number: US-BAYER-2014-029551

PATIENT
  Age: 36 Year
  Sex: Female
  Weight: 89.8 kg

DRUGS (17)
  1. YAZ [Suspect]
     Indication: CONTRACEPTION
     Dosage: UNK
     Dates: start: 2005, end: 20120112
  2. YASMIN [Suspect]
     Indication: CONTRACEPTION
     Dosage: UNK
     Dates: start: 2005, end: 20120112
  3. METFORMIN [Concomitant]
     Indication: WEIGHT DECREASED
     Dosage: 750 MG, QD
     Route: 048
  4. ESOMEPRAZOLE [Concomitant]
     Dosage: 20 MG, QD
     Route: 048
  5. FENOFIBRATE [Concomitant]
     Dosage: 134 MG, QD
     Route: 048
  6. HYDROCHLOROTHIAZIDE [Concomitant]
     Dosage: 12.5 MG, QD
     Route: 048
  7. MELOXICAM [Concomitant]
     Dosage: 15 MG, QD
     Route: 048
  8. VENLAFAXINE HYDROCHLORIDE [Concomitant]
     Dosage: 112.5 MG, QD
     Route: 048
  9. HYDROCODONE/ACETAMINOPHEN [Concomitant]
     Dosage: 5/500 MG PRN
     Route: 048
  10. DICLOXACILLIN [Concomitant]
     Dosage: 250 MG, UNK, [EVERY] 6 [HOURS
     Route: 048
  11. ALPRAZOLAM [Concomitant]
     Dosage: 0.25 MG, PRN
     Route: 048
  12. SCOPOLAMIN [Concomitant]
     Dosage: UNK
     Route: 061
     Dates: start: 20111221
  13. VISTARIL [Concomitant]
     Dosage: 50 MG, UNK
     Route: 048
     Dates: start: 20111221
  14. PERCOCET [Concomitant]
     Dosage: 2 TABLETS
     Route: 048
     Dates: start: 20111221
  15. VICODIN [Concomitant]
     Route: 048
  16. BENADRYL [Concomitant]
     Route: 048
  17. FERROUS SULFATE [Concomitant]
     Dosage: 325 MG, UNK
     Route: 048
     Dates: start: 20120102

REACTIONS (1)
  - Pulmonary embolism [Fatal]
